FAERS Safety Report 8057035-X (Version None)
Quarter: 2012Q1

REPORT INFORMATION
  Report Type: 
  Country: None (occurrence: None)
  Receive Date: 20120119
  Receipt Date: 20120116
  Transmission Date: 20120608
  Serious: Yes (Death)
  Sender: FDA-Public Use
  Company Number: US-B.I. PHARMACEUTICALS,INC./RIDGEFIELD-2012-EU-00197GD

PATIENT
  Age: 44 Year
  Sex: Female

DRUGS (5)
  1. ACETAMINOPHEN AND HYDROCODONE BITARTRATE [Suspect]
     Dosage: ROUTE: INGESTION PLUS INHALATION
  2. BUTALBITAL ACETAMINOPHEN AND CAFFEINE [Suspect]
     Dosage: ROUTE: INGESTION PLUS INHALATION
  3. CLONIDINE [Suspect]
     Dosage: ROUTE: INGESTION PLUS INHALATION
  4. OXYCODONE HCL [Suspect]
     Dosage: ROUTE: INGESTION PLUS INHALATION
  5. LITHIUM CARBONATE [Suspect]
     Dosage: ROUTE: INGESTION PLUS INHALATION

REACTIONS (1)
  - COMPLETED SUICIDE [None]
